FAERS Safety Report 11402324 (Version 1)
Quarter: 2015Q3

REPORT INFORMATION
  Report Type: Spontaneous
  Country: US (occurrence: None)
  Receive Date: 20150807
  Receipt Date: 20150807
  Transmission Date: 20151125
  Serious: No
  Sender: FDA-Public Use
  Company Number: 2015FE01990

PATIENT
  Age: 55 Year
  Sex: Female
  Weight: 54.4 kg

DRUGS (4)
  1. LAXATIVE (SENNOSIDE A+B) [Concomitant]
  2. PREPOPIK [Suspect]
     Active Substance: ANHYDROUS CITRIC ACID\MAGNESIUM OXIDE\SODIUM PICOSULFATE
     Indication: COLONOSCOPY
     Dates: start: 20150429, end: 20150429
  3. IDERAL (PROPRANOLOL HYDROCHLORIDE) [Concomitant]
  4. PREPOPIK [Suspect]
     Active Substance: ANHYDROUS CITRIC ACID\MAGNESIUM OXIDE\SODIUM PICOSULFATE
     Indication: BOWEL PREPARATION
     Dates: start: 20150429, end: 20150429

REACTIONS (1)
  - Vomiting [None]

NARRATIVE: CASE EVENT DATE: 20150429
